FAERS Safety Report 11201297 (Version 1)
Quarter: 2015Q2

REPORT INFORMATION
  Report Type: Spontaneous
  Country: US (occurrence: None)
  Receive Date: 20150617
  Receipt Date: 20150617
  Transmission Date: 20150821
  Serious: No
  Sender: FDA-Public Use
  Company Number: None

PATIENT
  Age: 25 Year
  Sex: Female

DRUGS (1)
  1. RITUXIMAB [Suspect]
     Active Substance: RITUXIMAB

REACTIONS (6)
  - Dyspnoea [None]
  - Anxiety [None]
  - Blood pressure increased [None]
  - Depressed level of consciousness [None]
  - Infusion related reaction [None]
  - Stridor [None]

NARRATIVE: CASE EVENT DATE: 20150424
